FAERS Safety Report 19841435 (Version 2)
Quarter: 2021Q3

REPORT INFORMATION
  Report Type: Report from Study
  Country: BD (occurrence: BD)
  Receive Date: 20210915
  Receipt Date: 20210922
  Transmission Date: 20211014
  Serious: Yes (Death, Hospitalization)
  Sender: FDA-Public Use
  Company Number: NVSC2021BD208887

PATIENT
  Age: 49 Year
  Sex: Male
  Weight: 55 kg

DRUGS (1)
  1. OMNITROPE [Suspect]
     Active Substance: SOMATROPIN
     Indication: MYOPATHY
     Dosage: ONCE/SINGLE (DOSE 5 MG/1.5 ML, FREQUENCY: SINGLE DOSE)
     Route: 058
     Dates: start: 20210817, end: 20210817

REACTIONS (2)
  - Respiratory failure [Fatal]
  - Product use in unapproved indication [Unknown]
